FAERS Safety Report 23925934 (Version 1)
Quarter: 2024Q2

REPORT INFORMATION
  Report Type: Spontaneous
  Country: US (occurrence: None)
  Receive Date: 20240531
  Receipt Date: 20240531
  Transmission Date: 20240715
  Serious: Yes (Other)
  Sender: FDA-Public Use
  Company Number: None

PATIENT
  Sex: Male

DRUGS (1)
  1. RENFLEXIS [Suspect]
     Active Substance: INFLIXIMAB-ABDA
     Indication: Crohn^s disease
     Dosage: 663MG  EVERY 8 WEEKS INTRAVENOUS?
     Route: 042
     Dates: start: 20230729

REACTIONS (3)
  - Infusion related reaction [None]
  - Throat tightness [None]
  - Therapy cessation [None]
